FAERS Safety Report 9443396 (Version 5)
Quarter: 2013Q4

REPORT INFORMATION
  Report Type: Report from Study
  Country: BR (occurrence: BR)
  Receive Date: 20130806
  Receipt Date: 20131113
  Transmission Date: 20140711
  Serious: Yes (Other)
  Sender: FDA-Public Use
  Company Number: PHHO2013BR010185

PATIENT
  Age: 27 Year
  Sex: Male
  Weight: 108 kg

DRUGS (3)
  1. AMN107 [Suspect]
     Indication: CHRONIC MYELOID LEUKAEMIA
     Dosage: 300 MG, BID
     Route: 048
     Dates: start: 20080708
  2. DIPIRONE [Concomitant]
  3. DRAMINE [Concomitant]

REACTIONS (1)
  - Loss of consciousness [Recovered/Resolved]
